FAERS Safety Report 4700052-5 (Version None)
Quarter: 2005Q2

REPORT INFORMATION
  Report Type: 
  Country: None (occurrence: None)
  Receive Date: 20050627
  Receipt Date: 20050624
  Transmission Date: 20051028
  Serious: Yes (Hospitalization)
  Sender: FDA-Public Use
  Company Number: US-GLAXOSMITHKLINE-A0563954A

PATIENT
  Age: 35 Year
  Sex: Male

DRUGS (7)
  1. MELPHALAN [Suspect]
     Indication: MULTIPLE MYELOMA
     Route: 042
     Dates: start: 20050410
  2. DEXAMETHASONE [Suspect]
     Indication: MULTIPLE MYELOMA
     Dosage: 20MG CYCLIC
     Route: 048
     Dates: start: 20050502
  3. THALIDOMIDE [Suspect]
     Indication: MULTIPLE MYELOMA
     Dosage: 100MG PER DAY
     Route: 048
     Dates: start: 20050430
  4. ACYCLOVIR [Concomitant]
     Dosage: 200MG THREE TIMES PER WEEK
     Route: 048
     Dates: start: 20050101
  5. LEVAQUIN [Concomitant]
     Dosage: 250MG PER DAY
     Route: 048
     Dates: start: 20050101
  6. DIFLUCAN [Concomitant]
     Dosage: 100MG PER DAY
     Route: 048
     Dates: start: 20050101
  7. OXYCONTIN [Concomitant]
     Dosage: 20MG TWICE PER DAY
     Route: 048
     Dates: start: 20050101

REACTIONS (2)
  - ATELECTASIS [None]
  - PAIN [None]
